FAERS Safety Report 10505259 (Version 2)
Quarter: 2014Q4

REPORT INFORMATION
  Report Type: Spontaneous
  Country: BR (occurrence: BR)
  Receive Date: 20141008
  Receipt Date: 20141114
  Transmission Date: 20150528
  Serious: Yes (Hospitalization)
  Sender: FDA-Public Use
  Company Number: BR-BRISTOL-MYERS SQUIBB COMPANY-21470893

PATIENT
  Age: 60 Year
  Sex: Male
  Weight: 65 kg

DRUGS (2)
  1. GLUCOVANCE [Suspect]
     Active Substance: GLYBURIDE\METFORMIN HYDROCHLORIDE
     Indication: DIABETES MELLITUS
     Dosage: 1DF: 2.5MG/500MG
  2. ENALAPRIL [Concomitant]
     Active Substance: ENALAPRIL
     Indication: BLOOD PRESSURE

REACTIONS (2)
  - Diabetes mellitus inadequate control [Recovered/Resolved]
  - Gastrointestinal carcinoma [Unknown]

NARRATIVE: CASE EVENT DATE: 201201
